FAERS Safety Report 13555044 (Version 6)
Quarter: 2020Q3

REPORT INFORMATION
  Report Type: Report from Study
  Country: IL (occurrence: IL)
  Receive Date: 20170517
  Receipt Date: 20171010
  Transmission Date: 20201104
  Serious: Yes (Hospitalization)
  Sender: FDA-Public Use
  Company Number: IL-ASTRAZENECA-2017SE50470

PATIENT
  Age: 70 Year
  Sex: Male
  Weight: 61 kg

DRUGS (28)
  1. MEDI4736 [Suspect]
     Active Substance: DURVALUMAB
     Indication: HEAD AND NECK CANCER METASTATIC
     Dosage: 620.0MG ONCE/SINGLE ADMINISTRATION
     Route: 042
     Dates: start: 20170404, end: 20170404
  2. MEDI4736 [Suspect]
     Active Substance: DURVALUMAB
     Indication: HEAD AND NECK CANCER METASTATIC
     Dosage: 610.0MG ONCE/SINGLE ADMINISTRATION
     Route: 042
     Dates: start: 20170418, end: 20170418
  3. TREMELIMUMAB. [Suspect]
     Active Substance: TREMELIMUMAB
     Indication: HEAD AND NECK CANCER METASTATIC
     Dosage: 62.0MG ONCE/SINGLE ADMINISTRATION
     Route: 042
     Dates: start: 20170103, end: 20170103
  4. ENSURE [Concomitant]
     Active Substance: AMINO ACIDS\DEXTROSE\ELECTROLYTES NOS\SOYBEAN OIL\VITAMINS
     Indication: DECREASED APPETITE
     Dates: start: 20161013
  5. MEDI4736 [Suspect]
     Active Substance: DURVALUMAB
     Indication: HEAD AND NECK CANCER METASTATIC
     Dosage: 620.0MG ONCE/SINGLE ADMINISTRATION
     Route: 042
     Dates: start: 20170131, end: 20170131
  6. LOSEC [Concomitant]
     Active Substance: OMEPRAZOLE
     Indication: PROPHYLAXIS
  7. GABAPENTIN. [Concomitant]
     Active Substance: GABAPENTIN
     Dates: start: 20170215
  8. MEDI4736 [Suspect]
     Active Substance: DURVALUMAB
     Indication: HEAD AND NECK CANCER METASTATIC
     Dosage: 1280.0MG ONCE/SINGLE ADMINISTRATION
     Route: 042
     Dates: start: 20161109, end: 20161109
  9. MEDI4736 [Suspect]
     Active Substance: DURVALUMAB
     Indication: HEAD AND NECK CANCER METASTATIC
     Dosage: 620.0MG ONCE/SINGLE ADMINISTRATION
     Route: 042
     Dates: start: 20170319, end: 20170319
  10. MEDI4736 [Suspect]
     Active Substance: DURVALUMAB
     Indication: HEAD AND NECK CANCER METASTATIC
     Dosage: 610.0MG ONCE/SINGLE ADMINISTRATION
     Route: 042
     Dates: start: 20170809, end: 20170809
  11. MEDI4736 [Suspect]
     Active Substance: DURVALUMAB
     Indication: HEAD AND NECK CANCER METASTATIC
     Dosage: 1330.0MG ONCE/SINGLE ADMINISTRATION
     Route: 042
     Dates: start: 20161013, end: 20161013
  12. TREMELIMUMAB. [Suspect]
     Active Substance: TREMELIMUMAB
     Indication: HEAD AND NECK CANCER METASTATIC
     Dosage: 67.0MG ONCE/SINGLE ADMINISTRATION
     Route: 042
     Dates: start: 20161206, end: 20161206
  13. AVILAC [Concomitant]
     Indication: CONSTIPATION
     Dates: start: 2016
  14. MEDI4736 [Suspect]
     Active Substance: DURVALUMAB
     Indication: HEAD AND NECK CANCER METASTATIC
     Dosage: 1240.0MG ONCE/SINGLE ADMINISTRATION
     Route: 042
     Dates: start: 20170103, end: 20170103
  15. MEDI4736 [Suspect]
     Active Substance: DURVALUMAB
     Indication: HEAD AND NECK CANCER METASTATIC
     Dosage: 620.0MG ONCE/SINGLE ADMINISTRATION
     Route: 042
     Dates: start: 20170228, end: 20170228
  16. MEDI4736 [Suspect]
     Active Substance: DURVALUMAB
     Indication: HEAD AND NECK CANCER METASTATIC
     Dosage: 620.0MG ONCE/SINGLE ADMINISTRATION
     Route: 042
     Dates: start: 20170712, end: 20170712
  17. MEDI4736 [Suspect]
     Active Substance: DURVALUMAB
     Indication: HEAD AND NECK CANCER METASTATIC
     Dosage: 610.0MG ONCE/SINGLE ADMINISTRATION
     Route: 042
     Dates: start: 20170824, end: 20170824
  18. AMLOW [Concomitant]
  19. ABSTRAL [Concomitant]
     Active Substance: FENTANYL CITRATE
     Indication: HEAD AND NECK CANCER METASTATIC
     Dates: start: 20161110, end: 20170511
  20. VIT D [Concomitant]
     Active Substance: VITAMIN D NOS
     Indication: VITAMIN D DEFICIENCY
     Dates: start: 2013
  21. MEDI4736 [Suspect]
     Active Substance: DURVALUMAB
     Indication: HEAD AND NECK CANCER METASTATIC
     Dosage: 620.0MG ONCE/SINGLE ADMINISTRATION
     Route: 042
     Dates: start: 20170214, end: 20170214
  22. OPTALGIN [Concomitant]
     Active Substance: METAMIZOLE
     Indication: HEAD AND NECK CANCER METASTATIC
     Dates: start: 20161109
  23. MEDI4736 [Suspect]
     Active Substance: DURVALUMAB
     Indication: HEAD AND NECK CANCER METASTATIC
     Dosage: 1330.0MG ONCE/SINGLE ADMINISTRATION
     Route: 042
     Dates: start: 20161206, end: 20161206
  24. MEDI4736 [Suspect]
     Active Substance: DURVALUMAB
     Indication: HEAD AND NECK CANCER METASTATIC
     Dosage: 610.0MG ONCE/SINGLE ADMINISTRATION
     Route: 042
     Dates: start: 20170503, end: 20170503
  25. MEDI4736 [Suspect]
     Active Substance: DURVALUMAB
     Indication: HEAD AND NECK CANCER METASTATIC
     Dosage: 610.0MG ONCE/SINGLE ADMINISTRATION
     Route: 042
     Dates: start: 20170726, end: 20170726
  26. TREMELIMUMAB. [Suspect]
     Active Substance: TREMELIMUMAB
     Indication: HEAD AND NECK CANCER METASTATIC
     Dosage: 64.0MG ONCE/SINGLE ADMINISTRATION
     Route: 042
     Dates: start: 20161109, end: 20161109
  27. CLONAZEPAM. [Concomitant]
     Active Substance: CLONAZEPAM
     Indication: HEAD AND NECK CANCER METASTATIC
     Dates: start: 20160713, end: 20170724
  28. TREMELIMUMAB. [Suspect]
     Active Substance: TREMELIMUMAB
     Indication: HEAD AND NECK CANCER METASTATIC
     Dosage: 66.0MG ONCE/SINGLE ADMINISTRATION
     Route: 042
     Dates: start: 20161013, end: 20161013

REACTIONS (1)
  - Pneumonia [Recovered/Resolved]

NARRATIVE: CASE EVENT DATE: 20170509
